FAERS Safety Report 12892721 (Version 1)
Quarter: 2016Q4

REPORT INFORMATION
  Report Type: Spontaneous
  Country: US (occurrence: US)
  Receive Date: 20161028
  Receipt Date: 20161028
  Transmission Date: 20170207
  Serious: Yes (Hospitalization)
  Sender: FDA-Public Use
  Company Number: None

PATIENT
  Age: 50 Year
  Sex: Male
  Weight: 50.5 kg

DRUGS (6)
  1. NOVOLOG MIX 70/30 [Suspect]
     Active Substance: INSULIN ASPART
     Indication: DIABETES MELLITUS
     Dosage: 30UNITS DAILY SQ
     Route: 058
  2. HUMULIN NOS [Suspect]
     Active Substance: INSULIN HUMAN
     Indication: DIABETES MELLITUS
     Dosage: 12UNITS Q EVENING SQ
     Route: 058
  3. BENZOTROPINE [Concomitant]
     Active Substance: BENZTROPINE
  4. TAPAZOLE [Concomitant]
     Active Substance: METHIMAZOLE
  5. RISPERDA [Concomitant]
  6. INDERAL [Concomitant]
     Active Substance: PROPRANOLOL HYDROCHLORIDE

REACTIONS (4)
  - Brain injury [None]
  - Thyrotoxic crisis [None]
  - Hypoglycaemia [None]
  - Blood glucose increased [None]

NARRATIVE: CASE EVENT DATE: 20160226
